FAERS Safety Report 10085108 (Version 2)
Quarter: 2014Q2

REPORT INFORMATION
  Report Type: Spontaneous
  Country: US (occurrence: US)
  Receive Date: 20140417
  Receipt Date: 20140417
  Transmission Date: 20141212
  Serious: No
  Sender: FDA-Public Use
  Company Number: US-ALEXION-A201400763

PATIENT
  Sex: 0

DRUGS (3)
  1. SOLIRIS 300MG [Suspect]
     Indication: HAEMOLYTIC URAEMIC SYNDROME
     Dosage: 6 TOTAL DOSES
     Route: 042
  2. METHYLPREDNISOLONE [Concomitant]
     Indication: THROMBOTIC MICROANGIOPATHY
     Dosage: 125 MG, SINGLE
     Route: 042
  3. METHYLPREDNISOLONE [Concomitant]
     Indication: TUBULOINTERSTITIAL NEPHRITIS

REACTIONS (1)
  - Off label use [Recovering/Resolving]
